FAERS Safety Report 5014281-7 (Version None)
Quarter: 2006Q2

REPORT INFORMATION
  Report Type: 
  Country: None (occurrence: None)
  Receive Date: 20060414
  Receipt Date: 20060119
  Transmission Date: 20061013
  Serious: No
  Sender: FDA-Public Use
  Company Number: 2005SP004355

PATIENT
  Age: 60 Year
  Sex: Male

DRUGS (1)
  1. LUNESTA [Suspect]
     Indication: INSOMNIA
     Dosage: HS; ORAL;  PRN; ORAL
     Route: 048
     Dates: start: 20051101, end: 20050101

REACTIONS (1)
  - MEMORY IMPAIRMENT [None]
